FAERS Safety Report 25504067 (Version 1)
Quarter: 2025Q3

REPORT INFORMATION
  Report Type: Spontaneous
  Country: US (occurrence: US)
  Receive Date: 20250702
  Receipt Date: 20250702
  Transmission Date: 20251021
  Serious: No
  Sender: GLENMARK
  Company Number: US-GLENMARK PHARMACEUTICALS-2024GMK094265

PATIENT

DRUGS (2)
  1. INDOMETHACIN [Suspect]
     Active Substance: INDOMETHACIN
     Indication: Bone disorder
     Route: 048
  2. INDOMETHACIN [Suspect]
     Active Substance: INDOMETHACIN
     Indication: Prophylaxis

REACTIONS (2)
  - Product use in unapproved indication [Unknown]
  - Recalled product administered [Unknown]
